FAERS Safety Report 11878795 (Version 1)
Quarter: 2015Q4

REPORT INFORMATION
  Report Type: Spontaneous
  Country: CN (occurrence: CN)
  Receive Date: 20151230
  Receipt Date: 20151230
  Transmission Date: 20160305
  Serious: Yes (Other)
  Sender: FDA-Public Use
  Company Number: CN-ASTELLAS-2015US048407

PATIENT
  Age: 77 Year
  Sex: Female
  Weight: 58 kg

DRUGS (4)
  1. PROGRAF [Suspect]
     Active Substance: TACROLIMUS\TACROLIMUS ANHYDROUS
     Indication: GLOMERULONEPHRITIS MEMBRANOUS
     Dosage: 4 MG DAILY DOSE, EVERY 12 HOURS
     Route: 048
     Dates: start: 20141120, end: 20151130
  2. SPIRONOLACTONE. [Concomitant]
     Active Substance: SPIRONOLACTONE
     Indication: PRODUCT USED FOR UNKNOWN INDICATION
     Dosage: 40 MG DAILY DOSE, TWICE DAILY
     Route: 048
  3. NITRENDIPINE [Concomitant]
     Active Substance: NITRENDIPINE
     Indication: PRODUCT USED FOR UNKNOWN INDICATION
     Dosage: 20 MG DAILY DOSE, TWICE DAILY
     Route: 048
  4. ISOSORBIDE                         /07346401/ [Concomitant]
     Indication: PRODUCT USED FOR UNKNOWN INDICATION
     Route: 048

REACTIONS (1)
  - Protein urine present [Unknown]

NARRATIVE: CASE EVENT DATE: 20151224
